FAERS Safety Report 5442947-3 (Version None)
Quarter: 2007Q3

REPORT INFORMATION
  Report Type: 
  Country: None (occurrence: None)
  Receive Date: 20070905
  Receipt Date: 20070827
  Transmission Date: 20080115
  Serious: Yes (Hospitalization, Other)
  Sender: FDA-Public Use
  Company Number: AU-JNJFOC-20070900053

PATIENT
  Age: 53 Year
  Sex: Female

DRUGS (2)
  1. TRAMADOL HCL [Suspect]
     Indication: FEELING ABNORMAL
     Route: 048
  2. PAROXETINE HYDROCHLORIDE [Interacting]
     Indication: DEPRESSION
     Route: 048

REACTIONS (7)
  - ABNORMAL BEHAVIOUR [None]
  - DELUSION OF GRANDEUR [None]
  - DRUG INTERACTION [None]
  - DYSARTHRIA [None]
  - GRAND MAL CONVULSION [None]
  - MANIA [None]
  - SEROTONIN SYNDROME [None]
